FAERS Safety Report 8534250-X (Version None)
Quarter: 2012Q3

REPORT INFORMATION
  Report Type: 
  Country: None (occurrence: None)
  Receive Date: 20120724
  Receipt Date: 20120716
  Transmission Date: 20120928
  Serious: Yes (Hospitalization)
  Sender: FDA-Public Use
  Company Number: IT-ABBOTT-12P-083-0951911-00

PATIENT
  Sex: Female

DRUGS (6)
  1. CLONAZEPAM [Suspect]
     Route: 048
     Dates: start: 20120621, end: 20120621
  2. FLUPHENAZINE DECANOATE [Concomitant]
     Indication: PRODUCT USED FOR UNKNOWN INDICATION
  3. VALPROIC ACID [Suspect]
     Route: 048
     Dates: start: 20120621, end: 20120621
  4. VALPROIC ACID [Suspect]
     Indication: SUICIDE ATTEMPT
     Route: 048
  5. CLONAZEPAM [Suspect]
     Indication: SUICIDE ATTEMPT
     Route: 048
  6. HALOPERIDOL [Concomitant]
     Indication: PRODUCT USED FOR UNKNOWN INDICATION

REACTIONS (2)
  - AGITATION [None]
  - INTENTIONAL OVERDOSE [None]
